FAERS Safety Report 13377423 (Version 1)
Quarter: 2017Q1

REPORT INFORMATION
  Report Type: Spontaneous
  Country: US (occurrence: US)
  Receive Date: 20170328
  Receipt Date: 20170328
  Transmission Date: 20170429
  Serious: No
  Sender: FDA-Public Use
  Company Number: None

PATIENT
  Age: 9 Year
  Sex: Male

DRUGS (1)
  1. SINGULAIR [Suspect]
     Active Substance: MONTELUKAST SODIUM
     Indication: BRONCHIAL HYPERREACTIVITY
     Dosage: AT BEDTIME
     Route: 048
     Dates: start: 20070501, end: 20110507

REACTIONS (19)
  - Mood altered [None]
  - Pyrexia [None]
  - Feeling abnormal [None]
  - Screaming [None]
  - Insomnia [None]
  - Hyperhidrosis [None]
  - Crying [None]
  - Panic attack [None]
  - Abnormal behaviour [None]
  - Anxiety [None]
  - Sleep terror [None]
  - Separation anxiety disorder [None]
  - Tremor [None]
  - Fear [None]
  - Hallucination [None]
  - Mood swings [None]
  - Fatigue [None]
  - Palpitations [None]
  - Asthma [None]

NARRATIVE: CASE EVENT DATE: 20110507
